FAERS Safety Report 14908132 (Version 1)
Quarter: 2018Q2

REPORT INFORMATION
  Report Type: Spontaneous
  Country: US (occurrence: US)
  Receive Date: 20180517
  Receipt Date: 20180517
  Transmission Date: 20180711
  Serious: Yes (Other)
  Sender: FDA-Public Use
  Company Number: US-LPDUSPRD-20180810

PATIENT
  Sex: Female
  Weight: 66.23 kg

DRUGS (2)
  1. INJECTAFER [Suspect]
     Active Substance: FERRIC CARBOXYMALTOSE
     Dosage: UNKNOWN
     Route: 042
     Dates: start: 20180508
  2. UNSPECIFIED STEROID [Suspect]
     Active Substance: UNSPECIFIED INGREDIENT
     Dosage: UNKNOWN
     Route: 042
     Dates: start: 20180508, end: 20180508

REACTIONS (12)
  - Lymphadenopathy [Unknown]
  - Oedema [Unknown]
  - Pruritus [Unknown]
  - Swelling [Unknown]
  - Throat tightness [Unknown]
  - Dysphagia [Unknown]
  - Eye swelling [Unknown]
  - Swelling face [Unknown]
  - Tongue disorder [Unknown]
  - Swollen tongue [Unknown]
  - Pain in extremity [Not Recovered/Not Resolved]
  - Pain [Not Recovered/Not Resolved]

NARRATIVE: CASE EVENT DATE: 20180508
